FAERS Safety Report 5020825-1 (Version None)
Quarter: 2006Q2

REPORT INFORMATION
  Report Type: 
  Country: None (occurrence: None)
  Receive Date: 20060608
  Receipt Date: 20060310
  Transmission Date: 20061013
  Serious: Yes (Other)
  Sender: FDA-Public Use
  Company Number: GB-BRISTOL-MYERS SQUIBB COMPANY-13310172

PATIENT
  Age: 2 Month
  Sex: Female

DRUGS (1)
  1. NYSTATIN [Suspect]
     Indication: ORAL CANDIDIASIS
     Dosage: DISPENSED 2.5 ML 4 TIMES DAILY INSTEAD OF 1 ML 4 TIMES DAILY
     Route: 048
     Dates: start: 20060309

REACTIONS (4)
  - MALAISE [None]
  - MEDICATION ERROR [None]
  - OVERDOSE [None]
  - VOMITING [None]
